FAERS Safety Report 4815063-9 (Version None)
Quarter: 2005Q4

REPORT INFORMATION
  Report Type: 
  Country: None (occurrence: None)
  Receive Date: 20051026
  Receipt Date: 20051011
  Transmission Date: 20060501
  Serious: Yes (Hospitalization)
  Sender: FDA-Public Use
  Company Number: GBS051018728

PATIENT
  Age: 68 Year
  Sex: Female
  Weight: 82 kg

DRUGS (11)
  1. DULOXETINE HYDROCHLORIDE [Suspect]
     Indication: DEPRESSION
     Dosage: 20 MG
     Dates: start: 20050620, end: 20050624
  2. TIOTROPIUM BROMIDE [Concomitant]
  3. AMINOPHYLLINE [Concomitant]
  4. SYMBICORT [Concomitant]
  5. OMEPRAZOLE [Concomitant]
  6. IBUPROFEN [Concomitant]
  7. ASPIRIN [Concomitant]
  8. ZOLPIDEM [Concomitant]
  9. LISINOPRIL [Concomitant]
  10. LORAZEPAM [Concomitant]
  11. SALBUTAMOL [Concomitant]

REACTIONS (2)
  - BLOOD PRESSURE INCREASED [None]
  - BLOOD SODIUM DECREASED [None]
